FAERS Safety Report 20306472 (Version 2)
Quarter: 2022Q1

REPORT INFORMATION
  Report Type: Report from Study
  Country: ES (occurrence: ES)
  Receive Date: 20220106
  Receipt Date: 20220315
  Transmission Date: 20220423
  Serious: Yes (Hospitalization)
  Sender: FDA-Public Use
  Company Number: ES-JNJFOC-20211262505

PATIENT
  Age: 55 Year
  Sex: Female
  Weight: 47 kg

DRUGS (11)
  1. AMIVANTAMAB [Suspect]
     Active Substance: AMIVANTAMAB
     Indication: Non-small cell lung cancer
     Route: 042
     Dates: start: 20211103, end: 20211216
  2. MORPHINE [Concomitant]
     Active Substance: MORPHINE
     Indication: Musculoskeletal chest pain
     Route: 048
     Dates: start: 20211001
  3. AMCHAFIBRIM [Concomitant]
     Indication: Haemoptysis
     Route: 048
     Dates: start: 20211001
  4. PEITEL [Concomitant]
     Indication: Rash
     Route: 061
     Dates: start: 20211201, end: 20211209
  5. PEITEL [Concomitant]
     Indication: Rash
  6. SYRACERIN [Concomitant]
     Indication: Rash
     Dosage: UNIT DOSAGE: 1
     Route: 061
     Dates: start: 20211209
  7. SYRACERIN [Concomitant]
     Indication: Rash
  8. HYDROCORTISONE [Concomitant]
     Active Substance: HYDROCORTISONE
     Indication: Rash
     Dosage: UNIT DOSAGE: 1
     Route: 061
     Dates: start: 20211209
  9. HYDROCORTISONE [Concomitant]
     Active Substance: HYDROCORTISONE
     Indication: Rash
  10. EBASTINE [Concomitant]
     Active Substance: EBASTINE
     Indication: Rash
     Route: 048
     Dates: start: 20211209
  11. EBASTINE [Concomitant]
     Active Substance: EBASTINE
     Indication: Rash

REACTIONS (1)
  - Dermatitis infected [Recovered/Resolved]

NARRATIVE: CASE EVENT DATE: 20211223
